FAERS Safety Report 20259352 (Version 2)
Quarter: 2022Q2

REPORT INFORMATION
  Report Type: Spontaneous
  Country: JP (occurrence: JP)
  Receive Date: 20211230
  Receipt Date: 20220624
  Transmission Date: 20220721
  Serious: Yes (Death, Hospitalization, Other)
  Sender: FDA-Public Use
  Company Number: JP-JAZZ-2021-JP-017847

PATIENT
  Age: 69 Year
  Sex: Male
  Weight: 62 kg

DRUGS (5)
  1. DEFITELIO [Suspect]
     Active Substance: DEFIBROTIDE SODIUM
     Indication: Venoocclusive liver disease
     Dosage: 25 MILLIGRAM/KILOGRAM/24 HOURS
     Route: 042
     Dates: start: 20200517, end: 20200527
  2. DEFITELIO [Suspect]
     Active Substance: DEFIBROTIDE SODIUM
     Dosage: 12.9 MILLIGRAM/KILOGRAM/24 HOURS
     Route: 042
     Dates: start: 20200528, end: 20200531
  3. DEFITELIO [Suspect]
     Active Substance: DEFIBROTIDE SODIUM
     Dosage: 9.7 MILLIGRAM/KILOGRAM/24 HOURS
     Route: 042
     Dates: start: 20200601, end: 20200607
  4. DEFITELIO [Suspect]
     Active Substance: DEFIBROTIDE SODIUM
     Dosage: 6.5 MILLIGRAM/KILOGRAM/ 24 HOURS
     Route: 042
     Dates: start: 20200608, end: 20200621
  5. DEFITELIO [Suspect]
     Active Substance: DEFIBROTIDE SODIUM
     Dosage: 3.2 MILLIGRAM/KILOGRAM/ 24 HOURS
     Route: 042
     Dates: start: 20200622, end: 20200625

REACTIONS (4)
  - Adenoviral haemorrhagic cystitis [Not Recovered/Not Resolved]
  - Venoocclusive liver disease [Fatal]
  - Haematuria [Recovering/Resolving]
  - Drug ineffective [Unknown]

NARRATIVE: CASE EVENT DATE: 20200527
